FAERS Safety Report 20620500 (Version 2)
Quarter: 2022Q1

REPORT INFORMATION
  Report Type: Report from Study
  Country: US (occurrence: US)
  Receive Date: 20220322
  Receipt Date: 20220329
  Transmission Date: 20220423
  Serious: Yes (Other)
  Sender: FDA-Public Use
  Company Number: US-GSKCCFUS-Case-01324863_AE-77063

PATIENT
  Sex: Male
  Weight: 87.3 kg

DRUGS (1)
  1. BELANTAMAB MAFODOTIN [Suspect]
     Active Substance: BELANTAMAB MAFODOTIN
     Indication: Plasma cell myeloma
     Dosage: 2.5 MG/KG, Z, Q 3 WEEKS
     Route: 042
     Dates: start: 20211105, end: 20220218

REACTIONS (1)
  - Plasma cell myeloma [Unknown]
